FAERS Safety Report 14528042 (Version 1)
Quarter: 2018Q1

REPORT INFORMATION
  Report Type: Spontaneous
  Country: FR (occurrence: FR)
  Receive Date: 20180213
  Receipt Date: 20180213
  Transmission Date: 20180509
  Serious: Yes (Other)
  Sender: FDA-Public Use
  Company Number: FR-MYLANLABS-2018M1009872

PATIENT
  Age: 86 Year
  Sex: Male

DRUGS (2)
  1. AMIODARONE [Suspect]
     Active Substance: AMIODARONE
     Indication: PRODUCT USED FOR UNKNOWN INDICATION
     Dosage: UNK
  2. TN [Concomitant]
     Indication: PROSTATIC DISORDER
     Dosage: UNK

REACTIONS (2)
  - Thyroid disorder [Not Recovered/Not Resolved]
  - Bradycardia [Not Recovered/Not Resolved]
